FAERS Safety Report 18447209 (Version 1)
Quarter: 2020Q4

REPORT INFORMATION
  Report Type: Spontaneous
  Country: US (occurrence: US)
  Receive Date: 20201030
  Receipt Date: 20201030
  Transmission Date: 20210114
  Serious: No
  Sender: FDA-Public Use
  Company Number: None

PATIENT
  Sex: Female

DRUGS (2)
  1. RETAINE [Suspect]
     Active Substance: HYPROMELLOSE 2910 (4000 MPA.S)
  2. SYSTANE (WITH PRESERVATIVES) [Concomitant]

REACTIONS (1)
  - Treatment failure [None]
